FAERS Safety Report 9055904 (Version 1)
Quarter: 2013Q1

REPORT INFORMATION
  Report Type: Spontaneous
  Country: US (occurrence: US)
  Receive Date: 20130206
  Receipt Date: 20130206
  Transmission Date: 20140127
  Serious: No
  Sender: FDA-Public Use
  Company Number: US-ALLERGAN-1201007US

PATIENT
  Sex: Female

DRUGS (4)
  1. RESTASIS? [Suspect]
     Indication: DRY EYE
     Dosage: 2 GTT, BID
     Route: 047
     Dates: start: 201201
  2. BLINK                              /00582501/ [Concomitant]
     Indication: DRY EYE
     Dosage: UNK
     Route: 047
  3. BAUSCH + LOMB SENSITIVE EYES [Concomitant]
     Indication: DRY EYE
     Dosage: UNK
     Route: 047
  4. REFRESH CELLUVISC SOLUTION [Concomitant]
     Indication: DRY EYE
     Dosage: UNK
     Route: 047

REACTIONS (2)
  - Wrong technique in drug usage process [Unknown]
  - Ocular hyperaemia [Recovered/Resolved]
